FAERS Safety Report 8287681-X (Version None)
Quarter: 2012Q2

REPORT INFORMATION
  Report Type: 
  Country: None (occurrence: None)
  Receive Date: 20120411
  Receipt Date: 20120326
  Transmission Date: 20120825
  Serious: Yes (Other)
  Sender: FDA-Public Use
  Company Number: FK201200974

PATIENT
  Age: 78 Year
  Sex: Male

DRUGS (3)
  1. DEXAMETHASONE SODIUM PHOSPHATE [Suspect]
     Indication: MULTIPLE MYELOMA
     Dosage: 16 MG, TWICE WEEKLY, UNKNOWN, 8 MG, TWICE WEEKLY, UNKNOWN, 16 MG, TWICE WEEKLY, UNKNOWN, 8 MG, ONCE
  2. ASPIRIN [Suspect]
     Indication: THROMBOSIS PROPHYLAXIS
     Dosage: 150 MG, DAILY, UNKNOWN
  3. LENALIDOMIDE [Suspect]
     Indication: MULTIPLE MYELOMA
     Dosage: 10 MG, DAILY, UNKNOWN

REACTIONS (7)
  - HERPES ZOSTER [None]
  - MUSCLE ATROPHY [None]
  - HYPERHIDROSIS [None]
  - HYPERTENSION [None]
  - DRUG INTOLERANCE [None]
  - BACK PAIN [None]
  - PERIPHERAL SENSORY NEUROPATHY [None]
